FAERS Safety Report 19891096 (Version 1)
Quarter: 2021Q3

REPORT INFORMATION
  Report Type: Spontaneous
  Country: CN (occurrence: CN)
  Receive Date: 20210928
  Receipt Date: 20210928
  Transmission Date: 20211014
  Serious: Yes (Other)
  Sender: FDA-Public Use
  Company Number: CN-PFIZER INC-202101212788

PATIENT
  Age: 21 Year
  Sex: Female

DRUGS (2)
  1. ERGOMETRINE MALEATE [Concomitant]
     Active Substance: ERGONOVINE MALEATE
     Indication: UTERINE SPASM
     Dosage: 0.2 MG
     Route: 030
     Dates: start: 20210830
  2. HEMABATE [Suspect]
     Active Substance: CARBOPROST TROMETHAMINE
     Indication: UTERINE HYPOTONUS
     Dosage: 250 UG, 1X/DAY
     Route: 030
     Dates: start: 20210830, end: 20210830

REACTIONS (6)
  - Headache [Recovered/Resolved]
  - Blood pressure increased [Recovering/Resolving]
  - Breath sounds abnormal [Unknown]
  - Pallor [Unknown]
  - Dyspnoea [Recovered/Resolved]
  - Heart sounds abnormal [Unknown]

NARRATIVE: CASE EVENT DATE: 20210830
